FAERS Safety Report 19398166 (Version 1)
Quarter: 2021Q2

REPORT INFORMATION
  Report Type: Spontaneous
  Country: JP (occurrence: JP)
  Receive Date: 20210610
  Receipt Date: 20210610
  Transmission Date: 20210717
  Serious: Yes (Hospitalization, Other)
  Sender: FDA-Public Use
  Company Number: JP-ADVANZ PHARMA-202105004098

PATIENT

DRUGS (6)
  1. LEVODOPA [Concomitant]
     Active Substance: LEVODOPA
     Dosage: 100 MG, QD
     Route: 049
  2. LEVODOPA [Concomitant]
     Active Substance: LEVODOPA
     Dosage: 50 MG
     Route: 049
  3. LEVODOPA [Concomitant]
     Active Substance: LEVODOPA
     Indication: PRODUCT USED FOR UNKNOWN INDICATION
     Dosage: 100 MG, QD
     Route: 048
  4. ZONISAMIDE. [Suspect]
     Active Substance: ZONISAMIDE
     Indication: PRODUCT USED FOR UNKNOWN INDICATION
     Dosage: 25 MG CAPSULE, QD CAPSULES
     Route: 048
  5. LEVODOPA [Concomitant]
     Active Substance: LEVODOPA
     Dosage: 60 MG
     Route: 048
  6. LEVODOPA [Concomitant]
     Active Substance: LEVODOPA
     Dosage: 300 MG
     Route: 049

REACTIONS (5)
  - Somnolence [Unknown]
  - Decreased appetite [Recovering/Resolving]
  - Pneumonia aspiration [Unknown]
  - General physical health deterioration [Recovering/Resolving]
  - Influenza [Unknown]
